FAERS Safety Report 25668047 (Version 1)
Quarter: 2025Q3

REPORT INFORMATION
  Report Type: Spontaneous
  Country: CN (occurrence: CN)
  Receive Date: 20250812
  Receipt Date: 20250812
  Transmission Date: 20251021
  Serious: Yes (Hospitalization)
  Sender: ROCHE
  Company Number: CN-ROCHE-10000356261

PATIENT
  Age: 59 Year
  Sex: Female

DRUGS (2)
  1. TOCILIZUMAB [Suspect]
     Active Substance: TOCILIZUMAB
     Indication: Therapeutic procedure
     Route: 042
     Dates: start: 20250728, end: 20250728
  2. LEUCOGEN [Concomitant]
     Active Substance: LEUCOGEN
     Dates: start: 20250730

REACTIONS (2)
  - Neutrophil count decreased [Not Recovered/Not Resolved]
  - Off label use [Unknown]

NARRATIVE: CASE EVENT DATE: 20250730
